FAERS Safety Report 24257020 (Version 1)
Quarter: 2024Q3

REPORT INFORMATION
  Report Type: Spontaneous
  Country: CN (occurrence: CN)
  Receive Date: 20240828
  Receipt Date: 20240828
  Transmission Date: 20241016
  Serious: Yes (Other)
  Sender: BEIGENE
  Company Number: CN-BEIGENE-BGN-2024-013187

PATIENT

DRUGS (12)
  1. TISLELIZUMAB [Suspect]
     Active Substance: TISLELIZUMAB
     Indication: Tonsil cancer
     Dosage: 200 MILLIGRAM
     Route: 041
     Dates: start: 20240711
  2. TISLELIZUMAB [Suspect]
     Active Substance: TISLELIZUMAB
     Indication: Metastases to bone
  3. TISLELIZUMAB [Suspect]
     Active Substance: TISLELIZUMAB
     Indication: Metastases to liver
  4. CISPLATIN [Suspect]
     Active Substance: CISPLATIN
     Indication: Tonsil cancer
     Dosage: 65 MILLIGRAM
     Route: 041
     Dates: start: 20240711
  5. CISPLATIN [Suspect]
     Active Substance: CISPLATIN
     Indication: Metastases to bone
  6. CISPLATIN [Suspect]
     Active Substance: CISPLATIN
     Indication: Metastases to liver
  7. NIMOTUZUMAB [Suspect]
     Active Substance: NIMOTUZUMAB
     Indication: Tonsil cancer
     Dosage: 200 MILLIGRAM
     Route: 041
     Dates: start: 20240711
  8. NIMOTUZUMAB [Suspect]
     Active Substance: NIMOTUZUMAB
     Indication: Metastases to bone
  9. NIMOTUZUMAB [Suspect]
     Active Substance: NIMOTUZUMAB
     Indication: Metastases to liver
  10. PACLITAXEL [Suspect]
     Active Substance: PACLITAXEL
     Indication: Tonsil cancer
     Dosage: 350 MILLIGRAM
     Route: 041
     Dates: start: 20240711
  11. PACLITAXEL [Suspect]
     Active Substance: PACLITAXEL
     Indication: Metastases to bone
  12. PACLITAXEL [Suspect]
     Active Substance: PACLITAXEL
     Indication: Metastases to liver

REACTIONS (2)
  - Otitis media [Unknown]
  - Tinnitus [Unknown]

NARRATIVE: CASE EVENT DATE: 20240802
